FAERS Safety Report 15860433 (Version 2)
Quarter: 2019Q1

REPORT INFORMATION
  Report Type: Spontaneous
  Country: CO (occurrence: CO)
  Receive Date: 20190123
  Receipt Date: 20190315
  Transmission Date: 20190417
  Serious: Yes (Other)
  Sender: FDA-Public Use
  Company Number: CO-AMGEN-COLSP2016100186

PATIENT
  Age: 51 Year
  Sex: Female

DRUGS (1)
  1. ENBREL [Suspect]
     Active Substance: ETANERCEPT
     Indication: RHEUMATOID ARTHRITIS
     Dosage: 50 MG, WEEKLY
     Route: 058
     Dates: start: 201605

REACTIONS (8)
  - Pain in extremity [Not Recovered/Not Resolved]
  - Drug effect incomplete [Not Recovered/Not Resolved]
  - Asthmatic crisis [Unknown]
  - Bronchospasm [Unknown]
  - Gait disturbance [Not Recovered/Not Resolved]
  - Myalgia [Unknown]
  - Cellulitis [Unknown]
  - Infection [Unknown]

NARRATIVE: CASE EVENT DATE: 201605
